FAERS Safety Report 7929647-2 (Version None)
Quarter: 2011Q4

REPORT INFORMATION
  Report Type: 
  Country: None (occurrence: None)
  Receive Date: 20111121
  Receipt Date: 20111115
  Transmission Date: 20120403
  Serious: Yes (Hospitalization)
  Sender: FDA-Public Use
  Company Number: US-PFIZER INC-2011281076

PATIENT
  Sex: Male
  Weight: 89.8 kg

DRUGS (7)
  1. AVELOX [Concomitant]
  2. DEXAMETHASONE [Concomitant]
     Dosage: UNK
  3. ZYRTEC [Concomitant]
  4. DOXORUBICIN HCL [Suspect]
     Indication: SARCOMA
     Dosage: 155 MG, UNK
     Dates: start: 20111019
  5. CIALIS [Concomitant]
  6. NEULASTA [Concomitant]
     Dosage: UNK
     Dates: start: 20111021
  7. CALCIUM [Concomitant]

REACTIONS (1)
  - CELLULITIS [None]
